FAERS Safety Report 4562451-4 (Version None)
Quarter: 2005Q1

REPORT INFORMATION
  Report Type: 
  Country: None (occurrence: None)
  Receive Date: 20050112
  Receipt Date: 20050112
  Transmission Date: 20050727
  Serious: Yes (Other)
  Sender: FDA-Public Use
  Company Number: None

PATIENT
  Sex: Male
  Weight: 67.8128 kg

DRUGS (1)
  1. GUANFACINE HCL [Suspect]
     Indication: INTERMITTENT EXPLOSIVE DISORDER
     Dosage: 1 MG BID
     Dates: start: 20010131, end: 20010723

REACTIONS (3)
  - DRUG EFFECT DECREASED [None]
  - IRRITABILITY [None]
  - PHARMACEUTICAL PRODUCT COMPLAINT [None]
